FAERS Safety Report 19077983 (Version 3)
Quarter: 2021Q3

REPORT INFORMATION
  Report Type: Spontaneous
  Country: PK (occurrence: PK)
  Receive Date: 20210331
  Receipt Date: 20210805
  Transmission Date: 20211014
  Serious: Yes (Other)
  Sender: FDA-Public Use
  Company Number: PK-PFIZER INC-2021296447

PATIENT
  Age: 42 Year

DRUGS (3)
  1. SUTENT [Suspect]
     Active Substance: SUNITINIB MALATE
     Indication: METASTATIC RENAL CELL CARCINOMA
     Dosage: UNK
     Dates: start: 20210128
  2. SUTENT [Suspect]
     Active Substance: SUNITINIB MALATE
     Dosage: 37.5 MG, 1X/DAY (OD)
  3. SUTENT [Suspect]
     Active Substance: SUNITINIB MALATE
     Dosage: 50 MG, 1X/DAY(ONCE DAILY (4 WEEKS ON AND 2 WEEKS OFF) )

REACTIONS (10)
  - Gastrointestinal disorder [Unknown]
  - Visual impairment [Unknown]
  - Dysaesthesia [Unknown]
  - Retinal pigment epithelial tear [Unknown]
  - Lymphadenopathy [Unknown]
  - Mouth ulceration [Unknown]
  - Hand-foot-and-mouth disease [Unknown]
  - Headache [Unknown]
  - Product prescribing error [Unknown]
  - Skin lesion [Unknown]
